FAERS Safety Report 21935751 (Version 2)
Quarter: 2023Q1

REPORT INFORMATION
  Report Type: Report from Study
  Country: DE (occurrence: None)
  Receive Date: 20230201
  Receipt Date: 20230202
  Transmission Date: 20230418
  Serious: Yes (Hospitalization)
  Sender: FDA-Public Use
  Company Number: DE-ROCHE-2863082

PATIENT
  Age: 51 Year
  Sex: Female
  Weight: 74 kg

DRUGS (4)
  1. ATEZOLIZUMAB [Suspect]
     Active Substance: ATEZOLIZUMAB
     Indication: Cervix carcinoma recurrent
     Dosage: ON 09/JUN/2021, RECEIVED LAST DOSE OF ATEZOLIZUMAB
     Route: 041
     Dates: start: 20210317
  2. BEVACIZUMAB [Suspect]
     Active Substance: BEVACIZUMAB
     Indication: Cervix carcinoma recurrent
     Dosage: ON 09/JUN/2021, RECEIVED LAST DOSE OF BEVACIZUMAB 1260 MG
     Route: 042
     Dates: start: 20210317
  3. PACLITAXEL [Suspect]
     Active Substance: PACLITAXEL
     Indication: Cervix carcinoma recurrent
     Dosage: ON 09/JUN/2021, RECEIVED LAST DOSE OF PACLITAXEL 350 MG
     Route: 042
     Dates: start: 20210317
  4. CARBOPLATIN [Suspect]
     Active Substance: CARBOPLATIN
     Indication: Cervix carcinoma recurrent
     Dosage: AUC 5?ON 09/JUN/2021, RECEIVED LAST DOSE OF CARBOPLATIN 521 MG PRIOR TO ADVERSE EVENT
     Route: 042
     Dates: start: 20210317

REACTIONS (1)
  - Febrile infection [Recovered/Resolved]

NARRATIVE: CASE EVENT DATE: 20210702
